FAERS Safety Report 24005079 (Version 2)
Quarter: 2024Q2

REPORT INFORMATION
  Report Type: Spontaneous
  Country: US (occurrence: US)
  Receive Date: 20240624
  Receipt Date: 20240628
  Transmission Date: 20240715
  Serious: No
  Sender: FDA-Public Use
  Company Number: US-009507513-2406USA007087

PATIENT
  Sex: Male

DRUGS (1)
  1. MOLNUPIRAVIR [Suspect]
     Active Substance: MOLNUPIRAVIR
     Dosage: UNK

REACTIONS (6)
  - Product packaging quantity issue [Unknown]
  - Product dose omission issue [Unknown]
  - Product use issue [Unknown]
  - No adverse event [Unknown]
  - Insurance issue [Unknown]
  - Product availability issue [Unknown]

NARRATIVE: CASE EVENT DATE: 20240619
